FAERS Safety Report 19777330 (Version 1)
Quarter: 2021Q3

REPORT INFORMATION
  Report Type: Spontaneous
  Country: US (occurrence: US)
  Receive Date: 20210901
  Receipt Date: 20210901
  Transmission Date: 20211014
  Serious: No
  Sender: FDA-Public Use
  Company Number: US-009507513-2108USA001573

PATIENT
  Age: 18 Year
  Sex: Male

DRUGS (3)
  1. ASPIRINE [Concomitant]
     Active Substance: ASPIRIN
     Indication: HYPOPLASTIC LEFT HEART SYNDROME
  2. PRINIVIL [Suspect]
     Active Substance: LISINOPRIL
     Indication: HYPOPLASTIC LEFT HEART SYNDROME
     Dosage: UNK
  3. ALDACTONE [Concomitant]
     Active Substance: SPIRONOLACTONE
     Indication: HYPOPLASTIC LEFT HEART SYNDROME

REACTIONS (1)
  - Product use in unapproved indication [Unknown]
